FAERS Safety Report 6572619-3 (Version None)
Quarter: 2010Q1

REPORT INFORMATION
  Report Type: 
  Country: None (occurrence: None)
  Receive Date: 20100205
  Receipt Date: 20100127
  Transmission Date: 20100710
  Serious: Yes (Hospitalization)
  Sender: FDA-Public Use
  Company Number: US-ABBOTT-09P-163-0594004-02

PATIENT
  Sex: Female
  Weight: 81 kg

DRUGS (12)
  1. HUMIRA [Suspect]
     Indication: CROHN'S DISEASE
     Route: 058
     Dates: start: 20080109
  2. FOLIC ACID [Concomitant]
     Indication: VITAMIN SUPPLEMENTATION
     Dates: start: 20070212, end: 20081114
  3. FOLIC ACID [Concomitant]
     Dates: start: 20081114
  4. RIFAXIMIN [Concomitant]
     Indication: INFECTION PROPHYLAXIS
     Dates: start: 20070212, end: 20081114
  5. RIFAXIMIN [Concomitant]
     Dates: start: 20081114
  6. MULTI-VITAMIN [Concomitant]
     Indication: VITAMIN SUPPLEMENTATION
     Dates: start: 20070823
  7. OXYCODONE HCL [Concomitant]
     Indication: PAIN
     Dosage: 5 - 10 MG
     Route: 048
     Dates: start: 20081031
  8. SENOKOT [Concomitant]
     Indication: CONSTIPATION PROPHYLAXIS
     Dosage: 8.6/50 MG TABLETS
     Dates: start: 20081031
  9. ERGOCALCIFEROL [Concomitant]
     Indication: VITAMIN SUPPLEMENTATION
     Dates: start: 20090201
  10. SACCHARATED IRON OXIDE [Concomitant]
     Indication: IRON DEFICIENCY
     Route: 042
     Dates: start: 20090101
  11. ANTIDIARRHOEAL MICROORGANISMS [Concomitant]
     Indication: PROBIOTIC THERAPY
     Dates: start: 20090223, end: 20090307
  12. OXYCET [Concomitant]
     Indication: PAIN
     Dosage: 1-2 TABS

REACTIONS (2)
  - CROHN'S DISEASE [None]
  - PHARYNGITIS STREPTOCOCCAL [None]
